FAERS Safety Report 14307301 (Version 1)
Quarter: 2017Q4

REPORT INFORMATION
  Report Type: Spontaneous
  Country: US (occurrence: US)
  Receive Date: 20171219
  Receipt Date: 20171219
  Transmission Date: 20180321
  Serious: Yes (Disabling)
  Sender: FDA-Public Use
  Company Number: None

PATIENT
  Age: 45 Year
  Sex: Female
  Weight: 77.4 kg

DRUGS (3)
  1. METOPROLOL. [Concomitant]
     Active Substance: METOPROLOL
  2. METRONIDAZOL 500MG. FLAGYL 500MG [Suspect]
     Active Substance: METRONIDAZOLE
     Indication: GASTROINTESTINAL INFLAMMATION
     Dosage: ?          QUANTITY:42 TABLET(S);?
     Route: 048
  3. ALEVE [Concomitant]
     Active Substance: NAPROXEN SODIUM

REACTIONS (7)
  - Dizziness [None]
  - Diarrhoea [None]
  - Pain in extremity [None]
  - Burning sensation [None]
  - Pruritus [None]
  - Urticaria [None]
  - Insomnia [None]

NARRATIVE: CASE EVENT DATE: 20171218
